FAERS Safety Report 5236196-1 (Version None)
Quarter: 2007Q1

REPORT INFORMATION
  Report Type: 
  Country: None (occurrence: None)
  Receive Date: 20070212
  Receipt Date: 20070205
  Transmission Date: 20070707
  Serious: Yes (Other)
  Sender: FDA-Public Use
  Company Number: DE-PFIZER INC-2004228707DE

PATIENT
  Sex: Female
  Weight: 81 kg

DRUGS (1)
  1. SOMAVERT [Suspect]
     Indication: ACROMEGALY
     Dosage: DAILY DOSE:30MG-FREQ:DAILY
     Route: 065

REACTIONS (1)
  - PITUITARY TUMOUR BENIGN [None]
